FAERS Safety Report 8008417-3 (Version None)
Quarter: 2011Q4

REPORT INFORMATION
  Report Type: 
  Country: None (occurrence: None)
  Receive Date: 20111227
  Receipt Date: 20111220
  Transmission Date: 20120403
  Serious: Yes (Hospitalization)
  Sender: FDA-Public Use
  Company Number: DE-ROCHE-585331

PATIENT
  Sex: Male
  Weight: 90 kg

DRUGS (12)
  1. RAMIPRIL [Concomitant]
  2. MABTHERA [Suspect]
     Indication: DIFFUSE LARGE B-CELL LYMPHOMA
     Dosage: FREQUENCY REPORTED AS 14D. FORM REPORTED AS INFUSION.
     Route: 042
  3. CYCLOPHOSPHAMIDE [Suspect]
     Indication: DIFFUSE LARGE B-CELL LYMPHOMA
     Dosage: FREQUENCY REPORTED AS 14D. FORM REPORTED AS INFUSION.
     Route: 042
  4. DOXORUBICIN HCL [Suspect]
     Indication: DIFFUSE LARGE B-CELL LYMPHOMA
     Dosage: FREQUENCY REPORTED AS 14 D. FPORM REPORTED AS 250 ML
     Route: 042
  5. ENOXAPARIN SODIUM [Concomitant]
  6. VINCRISTINE [Suspect]
     Indication: DIFFUSE LARGE B-CELL LYMPHOMA
     Dosage: FREQUENCY REPORTED AS 14, FORM REPORTED AS PUSH.
     Route: 042
  7. HYDROCHLOROTHIAZIDE [Concomitant]
  8. PREDNISONE TAB [Suspect]
     Indication: DIFFUSE LARGE B-CELL LYMPHOMA
     Dosage: FREQUENCY REPORTED AS 5D/14D.
     Route: 048
  9. AMLODIPINE [Concomitant]
  10. AVASTIN [Suspect]
     Indication: DIFFUSE LARGE B-CELL LYMPHOMA
     Dosage: FREQUENCY REPORTED AS 14 D. FORM REPORTED AS INFUSION.
     Route: 042
  11. SIMAVASTATIN [Concomitant]
  12. GRANOCYTE 34 [Concomitant]

REACTIONS (3)
  - DIZZINESS [None]
  - ATRIAL FIBRILLATION [None]
  - TACHYARRHYTHMIA [None]
